FAERS Safety Report 6568201-4 (Version None)
Quarter: 2010Q1

REPORT INFORMATION
  Report Type: 
  Country: None (occurrence: None)
  Receive Date: 20100203
  Receipt Date: 20100127
  Transmission Date: 20100710
  Serious: Yes (Hospitalization)
  Sender: FDA-Public Use
  Company Number: JP-ROCHE-673063

PATIENT
  Age: 79 Year
  Sex: Female

DRUGS (8)
  1. DENOSINE IV [Suspect]
     Indication: CYTOMEGALOVIRUS INFECTION
     Dosage: FORM REPORTED AS INFUSION.
     Route: 041
     Dates: start: 20091120, end: 20091130
  2. NEORAL [Suspect]
     Route: 048
     Dates: start: 20091106, end: 20091125
  3. NEORAL [Suspect]
     Route: 048
     Dates: start: 20091126
  4. RISPERDAL [Suspect]
     Indication: DELIRIUM
     Dosage: OTHER INDICATION: SLEEP LOSS
     Route: 048
     Dates: start: 20090912, end: 20091201
  5. RISPERDAL [Suspect]
     Route: 048
     Dates: start: 20091202
  6. PREDONINE [Concomitant]
     Route: 048
     Dates: start: 20090912
  7. THEO-DUR [Concomitant]
     Route: 048
     Dates: start: 20090912
  8. CRAVIT [Concomitant]
     Route: 048
     Dates: start: 20091124

REACTIONS (5)
  - CONVULSION [None]
  - DECREASED APPETITE [None]
  - DEPRESSED LEVEL OF CONSCIOUSNESS [None]
  - NAUSEA [None]
  - SOMNOLENCE [None]
